FAERS Safety Report 8129251-X (Version None)
Quarter: 2012Q1

REPORT INFORMATION
  Report Type: 
  Country: None (occurrence: None)
  Receive Date: 20120210
  Receipt Date: 20111122
  Transmission Date: 20120608
  Serious: Yes (Hospitalization)
  Sender: FDA-Public Use
  Company Number: US-BRISTOL-MYERS SQUIBB COMPANY-16243784

PATIENT
  Age: 54 Year
  Sex: Female

DRUGS (2)
  1. ORENCIA [Suspect]
     Dosage: 1DF=RECENT INF 10 (ABOUT 30 DAYS AGO)TAKING 4 VIALS EACH TIME
  2. METHOTREXATE [Suspect]

REACTIONS (2)
  - STAPHYLOCOCCAL SEPSIS [None]
  - ARTHRITIS BACTERIAL [None]
